FAERS Safety Report 12336346 (Version 1)
Quarter: 2016Q2

REPORT INFORMATION
  Report Type: Spontaneous
  Country: US (occurrence: None)
  Receive Date: 20160504
  Receipt Date: 20160504
  Transmission Date: 20160815
  Serious: No
  Sender: FDA-Public Use
  Company Number: None

PATIENT
  Age: 67 Year
  Sex: Female

DRUGS (2)
  1. CAPECITABINE 500 MG GENENTECH [Suspect]
     Active Substance: CAPECITABINE
     Indication: BREAST CANCER
     Dosage: 500 MG 3 BID ORAL
     Route: 048
     Dates: start: 20160411
  2. CAPECITABINE 500 MG GENENTECH [Suspect]
     Active Substance: CAPECITABINE
     Indication: METASTASES TO LIVER
     Dosage: 500 MG 3 BID ORAL
     Route: 048
     Dates: start: 20160411

REACTIONS (1)
  - Nausea [None]

NARRATIVE: CASE EVENT DATE: 20160502
